FAERS Safety Report 4415377-0 (Version None)
Quarter: 2004Q2

REPORT INFORMATION
  Report Type: 
  Country: None (occurrence: None)
  Receive Date: 20040630
  Receipt Date: 20031202
  Transmission Date: 20050107
  Serious: Yes (Hospitalization)
  Sender: FDA-Public Use
  Company Number: 2003033578

PATIENT
  Age: 85 Year
  Sex: Female

DRUGS (6)
  1. ZOLOFT [Suspect]
     Indication: DEPRESSION
     Dosage: 25 MG (DAILY), ORAL
     Route: 048
     Dates: start: 20030723, end: 20030731
  2. DYAZIDE [Suspect]
     Indication: DEPRESSION
     Dosage: 37.5/25 (DAILY), ORAL
     Route: 048
     Dates: start: 20020101, end: 20030731
  3. ATENOLOL [Concomitant]
  4. CALCIUM CARBONATE (CALCIUM CARBONATE) [Concomitant]
  5. ASCORBIC ACID [Concomitant]
  6. TOCOPHEROL CONCENTRATE CAP [Concomitant]

REACTIONS (2)
  - BLOOD SODIUM DECREASED [None]
  - NAUSEA [None]
